FAERS Safety Report 5078466-6 (Version None)
Quarter: 2006Q3

REPORT INFORMATION
  Report Type: 
  Country: None (occurrence: None)
  Receive Date: 20060720
  Receipt Date: 20060610
  Transmission Date: 20061208
  Serious: Yes (Other)
  Sender: FDA-Public Use
  Company Number: HQWYE212213JUN06

PATIENT
  Age: 59 Year
  Sex: Female
  Weight: 48.12 kg

DRUGS (2)
  1. ADVIL PM [Suspect]
     Indication: PAIN IN EXTREMITY
     Dosage: 2 TABLET, 1X PER 1 DAY, ORAL
     Route: 048
     Dates: start: 20060501, end: 20060501
  2. SYNTHROID [Concomitant]

REACTIONS (2)
  - DRUG INEFFECTIVE [None]
  - HANGOVER [None]
